FAERS Safety Report 4565095-3 (Version None)
Quarter: 2005Q1

REPORT INFORMATION
  Report Type: 
  Country: None (occurrence: None)
  Receive Date: 20050126
  Receipt Date: 20050112
  Transmission Date: 20050727
  Serious: Yes (Life-Threatening)
  Sender: FDA-Public Use
  Company Number: 2004AP06469

PATIENT
  Age: 16 Year
  Sex: Female
  Weight: 68 kg

DRUGS (17)
  1. DIPRIVAN [Suspect]
     Indication: INDUCTION OF ANAESTHESIA
     Dosage: 120 MG DAILY IV
     Route: 042
     Dates: start: 20041224, end: 20041224
  2. MUSCULAX [Suspect]
     Indication: MUSCLE RELAXANT THERAPY
     Dosage: 8 MG DAILY IV
     Route: 042
     Dates: start: 20041224, end: 20041224
  3. CEFTIZOXIME SODIUM [Concomitant]
  4. SOLU-CORTEF [Concomitant]
  5. BOSMIN [Concomitant]
  6. MEYLON [Concomitant]
  7. KAKODIN [Concomitant]
  8. NEOPHYLLIN [Concomitant]
  9. MANNITOL [Concomitant]
  10. ELASPOL [Concomitant]
  11. FIRSTCIN [Concomitant]
  12. CARBENIN [Concomitant]
  13. AMIKACIN SULFATE [Concomitant]
  14. VANCOMYCIN [Concomitant]
  15. STRONG NEO-MINOPHAGEN C [Concomitant]
  16. KAYTWO [Concomitant]
  17. HUMULIN [Concomitant]

REACTIONS (8)
  - ACUTE RESPIRATORY DISTRESS SYNDROME [None]
  - BLOOD PRESSURE DECREASED [None]
  - BRAIN OEDEMA [None]
  - HEART RATE DECREASED [None]
  - HYPERPYREXIA [None]
  - HYPOXIC ENCEPHALOPATHY [None]
  - LARYNGEAL OEDEMA [None]
  - VENTRICULAR FIBRILLATION [None]
